FAERS Safety Report 5750261-1 (Version None)
Quarter: 2008Q2

REPORT INFORMATION
  Report Type: 
  Country: None (occurrence: None)
  Receive Date: 20080522
  Receipt Date: 20080522
  Transmission Date: 20081010
  Serious: No
  Sender: FDA-Public Use
  Company Number: None

PATIENT
  Age: 82 Year
  Sex: Female
  Weight: 77.1115 kg

DRUGS (1)
  1. DIGITEK 250MCG NDC 62794-0146-10 [Suspect]
     Dosage: 250MCG DAILY PO
     Route: 048
     Dates: start: 20030206

REACTIONS (3)
  - ARRHYTHMIA [None]
  - MALAISE [None]
  - SWELLING [None]
